FAERS Safety Report 10441192 (Version 1)
Quarter: 2014Q3

REPORT INFORMATION
  Report Type: Spontaneous
  Country: US (occurrence: None)
  Receive Date: 20140905
  Receipt Date: 20140905
  Transmission Date: 20150326
  Serious: Yes (Death)
  Sender: FDA-Public Use
  Company Number: 2014SA119147

PATIENT
  Age: 52 Year
  Sex: Female

DRUGS (5)
  1. AMITRIPTYLINE [Suspect]
     Active Substance: AMITRIPTYLINE
  2. CON MEDS [Concomitant]
  3. PREV MEDS [Concomitant]
  4. SERTRALINE [Suspect]
     Active Substance: SERTRALINE HYDROCHLORIDE
  5. DIPHENHYDRAMINE [Suspect]
     Active Substance: DIPHENHYDRAMINE

REACTIONS (3)
  - Toxicity to various agents [None]
  - Intentional overdose [None]
  - Drug interaction [None]
